FAERS Safety Report 10462011 (Version 1)
Quarter: 2014Q3

REPORT INFORMATION
  Report Type: Spontaneous
  Country: IT (occurrence: IT)
  Receive Date: 20140918
  Receipt Date: 20140918
  Transmission Date: 20150326
  Serious: Yes (Hospitalization)
  Sender: FDA-Public Use
  Company Number: IT-ACTAVIS-2014-20066

PATIENT
  Age: 70 Year
  Sex: Female

DRUGS (2)
  1. NIMESULIDE (UNKNOWN) [Suspect]
     Active Substance: NIMESULIDE
     Indication: PAIN
     Dosage: 1, DF, TOTAL
     Route: 048
     Dates: start: 20140714, end: 20140714
  2. TRAMADOL (UNKNOWN) [Suspect]
     Active Substance: TRAMADOL
     Indication: PAIN
     Dosage: 1, DF, TOTAL
     Route: 048
     Dates: start: 20140714, end: 20140714

REACTIONS (2)
  - Vomiting [Unknown]
  - Hyperhidrosis [Unknown]

NARRATIVE: CASE EVENT DATE: 20140714
